FAERS Safety Report 11909681 (Version 1)
Quarter: 2016Q1

REPORT INFORMATION
  Report Type: Spontaneous
  Country: US (occurrence: None)
  Receive Date: 20160111
  Receipt Date: 20160111
  Transmission Date: 20160526
  Serious: Yes (Disabling, Other)
  Sender: FDA-Public Use
  Company Number: None

PATIENT
  Age: 59 Year
  Weight: 86.18 kg

DRUGS (9)
  1. ARTHRITIS TYLENOL [Concomitant]
  2. MAGNESIUM [Concomitant]
     Active Substance: MAGNESIUM
  3. CARVEDILOL. [Concomitant]
     Active Substance: CARVEDILOL
  4. S-ADENOSYLMETHIONINE SULFATE P-TOLUENESULFONATE [Concomitant]
     Active Substance: ADEMETIONINE SULFATE TOSILATE
  5. FISH OIL [Concomitant]
     Active Substance: FISH OIL
  6. LEVAQUIN [Suspect]
     Active Substance: LEVOFLOXACIN
     Indication: SINUSITIS
     Dates: start: 20131008, end: 20131022
  7. VERAPAMIL [Concomitant]
     Active Substance: VERAPAMIL HYDROCHLORIDE
  8. HCTZ [Concomitant]
     Active Substance: HYDROCHLOROTHIAZIDE
  9. CENTRUM VITAMEN [Concomitant]

REACTIONS (7)
  - Clostridium difficile infection [None]
  - Anxiety [None]
  - Pain [None]
  - Onychomycosis [None]
  - Neuropathy peripheral [None]
  - Fibromyalgia [None]
  - Osteoarthritis [None]

NARRATIVE: CASE EVENT DATE: 20131008
